FAERS Safety Report 13546470 (Version 1)
Quarter: 2017Q2

REPORT INFORMATION
  Report Type: Spontaneous
  Country: DK (occurrence: DK)
  Receive Date: 20170515
  Receipt Date: 20170515
  Transmission Date: 20170830
  Serious: Yes (Other)
  Sender: FDA-Public Use
  Company Number: DK-AMGEN-DNKSP2017071691

PATIENT
  Sex: Female

DRUGS (1)
  1. REPATHA [Suspect]
     Active Substance: EVOLOCUMAB
     Indication: PRODUCT USED FOR UNKNOWN INDICATION
     Dosage: UNK
     Route: 065
     Dates: start: 20161024

REACTIONS (6)
  - Musculoskeletal pain [Unknown]
  - Skin wrinkling [Unknown]
  - Pruritus generalised [Unknown]
  - Arthralgia [Unknown]
  - Nausea [Unknown]
  - Erythema [Unknown]
